FAERS Safety Report 9454548 (Version 2)
Quarter: 2013Q3

REPORT INFORMATION
  Report Type: Report from Study
  Country: US (occurrence: US)
  Receive Date: 20130812
  Receipt Date: 20130820
  Transmission Date: 20140515
  Serious: No
  Sender: FDA-Public Use
  Company Number: US-VERTEX PHARMACEUTICALS INC-2013-008714

PATIENT
  Age: 33 Year
  Sex: Male
  Weight: 85.2 kg

DRUGS (6)
  1. VX-770 [Suspect]
     Indication: CYSTIC FIBROSIS
     Dosage: 150 MG, BID
     Route: 048
     Dates: start: 20120824
  2. ZENPEP [Concomitant]
     Dosage: 20000; 6-7 WITH MEALS, 3-4 WITH SNACKS
  3. ZANTAC [Concomitant]
     Dosage: UNK, PRN
  4. ALBUTEROL [Concomitant]
     Dosage: 0.83 %, QD + PRN
  5. ALEVE [Concomitant]
     Dosage: 2 DF, PRN
  6. ONE-A-DAY MULTI VITAMINS [Concomitant]
     Dosage: UNK, QD

REACTIONS (2)
  - Treatment noncompliance [Unknown]
  - Arthralgia [Not Recovered/Not Resolved]
